FAERS Safety Report 18103461 (Version 3)
Quarter: 2022Q4

REPORT INFORMATION
  Report Type: Spontaneous
  Country: US (occurrence: US)
  Receive Date: 20200803
  Receipt Date: 20221012
  Transmission Date: 20230113
  Serious: Yes (Death, Other)
  Sender: FDA-Public Use
  Company Number: US-SAARTEMIS-SAC202007290213

PATIENT
  Age: 66 Year
  Sex: Male

DRUGS (1)
  1. ZANTAC [Suspect]
     Active Substance: RANITIDINE HYDROCHLORIDE
     Indication: Dyspepsia
     Dosage: UNK UNK, QD
     Dates: start: 198801, end: 202004

REACTIONS (2)
  - Gastric cancer stage IV [Fatal]
  - Oesophageal carcinoma [Fatal]

NARRATIVE: CASE EVENT DATE: 20190101
